FAERS Safety Report 7323121-2 (Version None)
Quarter: 2011Q1

REPORT INFORMATION
  Report Type: 
  Country: None (occurrence: None)
  Receive Date: 20110301
  Receipt Date: 20110223
  Transmission Date: 20110831
  Serious: Yes (Other)
  Sender: FDA-Public Use
  Company Number: FR-SANOFI-AVENTIS-2011SA006649

PATIENT
  Age: 74 Year
  Sex: Male
  Weight: 84 kg

DRUGS (6)
  1. AMAREL [Concomitant]
     Route: 048
  2. GLUCOPHAGE [Concomitant]
     Route: 048
  3. LANTUS [Suspect]
     Route: 058
     Dates: start: 20040102
  4. ZANIDIP [Concomitant]
     Route: 048
  5. ZOLPIDEM [Concomitant]
     Indication: INSOMNIA
     Route: 048
  6. LEVOTHYROXINE SODIUM [Concomitant]
     Indication: HYPOTHYROIDISM
     Route: 048

REACTIONS (6)
  - DIARRHOEA [None]
  - METASTASES TO LIVER [None]
  - METASTASES TO ADRENALS [None]
  - GAMMA-GLUTAMYLTRANSFERASE INCREASED [None]
  - COLON CANCER [None]
  - WEIGHT DECREASED [None]
